FAERS Safety Report 15304948 (Version 3)
Quarter: 2019Q1

REPORT INFORMATION
  Report Type: Spontaneous
  Country: US (occurrence: US)
  Receive Date: 20180822
  Receipt Date: 20190111
  Transmission Date: 20190417
  Serious: Yes (Hospitalization, Other)
  Sender: FDA-Public Use
  Company Number: US-PRINSTON PHARMACEUTICAL INC.-2018PRN00825

PATIENT
  Age: 35 Year
  Sex: Female
  Weight: 99.77 kg

DRUGS (2)
  1. UNSPECIFIED ANXIETY MEDICATION [Concomitant]
     Active Substance: UNSPECIFIED INGREDIENT
  2. VALSARTAN AND HYDROCHLOROTHIAZIDE [Suspect]
     Active Substance: HYDROCHLOROTHIAZIDE\VALSARTAN
     Indication: HYPERTENSION
     Dosage: 1 TABLETS, 1X/DAY
     Route: 048
     Dates: start: 201411, end: 2018

REACTIONS (1)
  - Thyroid cancer [Recovered/Resolved]

NARRATIVE: CASE EVENT DATE: 201605
